FAERS Safety Report 20719551 (Version 2)
Quarter: 2022Q2

REPORT INFORMATION
  Report Type: Report from Study
  Country: IT (occurrence: IT)
  Receive Date: 20220418
  Receipt Date: 20220429
  Transmission Date: 20220721
  Serious: Yes (Hospitalization, Other)
  Sender: FDA-Public Use
  Company Number: IT-UCBSA-2022012965

PATIENT
  Sex: Male

DRUGS (2)
  1. LEVETIRACETAM [Suspect]
     Active Substance: LEVETIRACETAM
     Indication: Product used for unknown indication
     Dosage: 1000 MILLIGRAM, QD (500 MILLIGRAM, 2X/DAY (BID))
  2. VIMPAT [Suspect]
     Active Substance: LACOSAMIDE
     Indication: Product used for unknown indication
     Dosage: 50 MILLIGRAM

REACTIONS (9)
  - Complication associated with device [Unknown]
  - Limb deformity [Unknown]
  - General physical health deterioration [Unknown]
  - Prosthesis implantation [Unknown]
  - Limb injury [Unknown]
  - Genital discomfort [Recovered/Resolved]
  - Genital burning sensation [Recovered/Resolved]
  - Infection [Unknown]
  - Skin abrasion [Recovered/Resolved]

NARRATIVE: CASE EVENT DATE: 20200101
